FAERS Safety Report 23334008 (Version 4)
Quarter: 2024Q1

REPORT INFORMATION
  Report Type: Report from Study
  Country: US (occurrence: US)
  Receive Date: 20231223
  Receipt Date: 20240126
  Transmission Date: 20240409
  Serious: Yes (Life-Threatening, Disabling)
  Sender: FDA-Public Use
  Company Number: US-ABBVIE-5553853

PATIENT
  Age: 19 Year
  Sex: Male
  Weight: 98 kg

DRUGS (7)
  1. HUMIRA [Suspect]
     Active Substance: ADALIMUMAB
     Indication: Crohn^s disease
     Route: 058
     Dates: start: 20150415, end: 20210111
  2. HUMIRA [Suspect]
     Active Substance: ADALIMUMAB
     Dosage: 2 80 MG DOSES GIVEN DURING CROHN^S FLARE, THEN?TRANSITIONED BACK TO 40 MG.
     Route: 058
     Dates: start: 20190518, end: 20190525
  3. METHOTREXATE [Suspect]
     Active Substance: METHOTREXATE
     Indication: Crohn^s disease
     Route: 048
     Dates: start: 20150528, end: 20161101
  4. METHOTREXATE [Suspect]
     Active Substance: METHOTREXATE
     Indication: Crohn^s disease
     Route: 048
     Dates: start: 20161118, end: 20161122
  5. METHOTREXATE [Suspect]
     Active Substance: METHOTREXATE
     Indication: Crohn^s disease
     Route: 048
     Dates: start: 20170324
  6. PREDNISONE [Concomitant]
     Active Substance: PREDNISONE
     Indication: Crohn^s disease
     Route: 048
     Dates: start: 20161127
  7. ENTOCORT [Concomitant]
     Active Substance: BUDESONIDE
     Indication: Crohn^s disease
     Route: 048
     Dates: start: 20190422

REACTIONS (1)
  - Testicular germ cell tumour [Not Recovered/Not Resolved]

NARRATIVE: CASE EVENT DATE: 20220501
